FAERS Safety Report 20532218 (Version 1)
Quarter: 2022Q1

REPORT INFORMATION
  Report Type: Spontaneous
  Country: US (occurrence: None)
  Receive Date: 20220301
  Receipt Date: 20220301
  Transmission Date: 20220424
  Serious: Yes (Life-Threatening)
  Sender: FDA-Public Use
  Company Number: None

PATIENT
  Age: 90 Year
  Sex: Male
  Weight: 69 kg

DRUGS (1)
  1. REGADENOSON [Suspect]
     Active Substance: REGADENOSON
     Indication: Atrial fibrillation
     Dosage: FREQUENCY : ONCE;?
     Route: 042
     Dates: start: 20220106, end: 20220106

REACTIONS (5)
  - Lethargy [None]
  - Unresponsive to stimuli [None]
  - Seizure [None]
  - Hypotension [None]
  - Resuscitation [None]

NARRATIVE: CASE EVENT DATE: 20220106
